FAERS Safety Report 18204835 (Version 1)
Quarter: 2020Q3

REPORT INFORMATION
  Report Type: Spontaneous
  Country: US (occurrence: US)
  Receive Date: 20200828
  Receipt Date: 20200828
  Transmission Date: 20201103
  Serious: No
  Sender: FDA-Public Use
  Company Number: US-CIPLA LTD.-2020US04460

PATIENT

DRUGS (4)
  1. MELOXICAM. [Suspect]
     Active Substance: MELOXICAM
     Indication: JOINT SWELLING
     Dosage: UNK
     Route: 048
  2. MELOXICAM. [Suspect]
     Active Substance: MELOXICAM
     Indication: ARTHRALGIA
     Dosage: UNK, BID (BROKE 1 TAB INTO HALF + TOOK 7.5 MG IN MORNING AFTER BREAKFAST + OTHER HALF AT LUNCH)
     Route: 048
     Dates: start: 20200602
  3. SYNTHROID [Concomitant]
     Active Substance: LEVOTHYROXINE SODIUM
     Indication: HYPOTHYROIDISM
     Dosage: 75 MICROGRAM, QD (ONCE DAILY)
     Route: 065
     Dates: start: 1997
  4. MELOXICAM. [Suspect]
     Active Substance: MELOXICAM
     Dosage: 15 MILLIGRAM, QD (ONCE A DAY)
     Route: 048
     Dates: start: 20200603, end: 20200603

REACTIONS (4)
  - Off label use [Unknown]
  - Drug ineffective for unapproved indication [Unknown]
  - Product substitution issue [Unknown]
  - Wrong technique in product usage process [Unknown]

NARRATIVE: CASE EVENT DATE: 20200602
